FAERS Safety Report 24791934 (Version 1)
Quarter: 2024Q4

REPORT INFORMATION
  Report Type: Spontaneous
  Country: US (occurrence: US)
  Receive Date: 20241231
  Receipt Date: 20241231
  Transmission Date: 20250115
  Serious: No
  Sender: Haleon PLC
  Company Number: US-HALEON-2218985

PATIENT
  Age: 75 Year
  Sex: Female

DRUGS (1)
  1. VOLTAREN ARTHRITIS PAIN [Suspect]
     Active Substance: DICLOFENAC SODIUM
     Indication: Product used for unknown indication
     Dosage: 1 - APPLICATION (AP)
     Dates: start: 20241225, end: 20241225

REACTIONS (4)
  - Throat irritation [Not Recovered/Not Resolved]
  - Accidental exposure to product by elderly person [Unknown]
  - Oropharyngeal pain [Unknown]
  - Oral discomfort [Unknown]
